FAERS Safety Report 4661697-4 (Version None)
Quarter: 2005Q2

REPORT INFORMATION
  Report Type: 
  Country: None (occurrence: None)
  Receive Date: 20050502
  Receipt Date: 20050329
  Transmission Date: 20051028
  Serious: No
  Sender: FDA-Public Use
  Company Number: 200510636US

PATIENT
  Age: 62 Year
  Sex: Female
  Weight: 88.6 kg

DRUGS (13)
  1. KETEK [Suspect]
     Indication: SINUSITIS
     Dosage: 800 MG QD PO
     Route: 048
     Dates: start: 20050111, end: 20050115
  2. ALLEGRA [Concomitant]
  3. COLESEVELAM HYDROCHLORIDE (WELCHOL) [Concomitant]
  4. ZETIA [Concomitant]
  5. HYDROCHLOROTHIAZIDE, LISINOPRIL (ZESTORETIC) [Concomitant]
  6. NASACORT AQ [Concomitant]
  7. VITAMINS [Concomitant]
  8. MINERAL TAB [Concomitant]
  9. ACETYLSALICYLIC ACID [Concomitant]
  10. GLUCOSAMINE AND CHONDROITIN WITH MSM [Concomitant]
  11. CALCIUM GLUCONATE [Concomitant]
  12. VITAMIN E [Concomitant]
  13. UBIDECARENONE (COENZYME Q10) [Concomitant]

REACTIONS (2)
  - DIPLOPIA [None]
  - VISION BLURRED [None]
